FAERS Safety Report 17705858 (Version 1)
Quarter: 2020Q2

REPORT INFORMATION
  Report Type: Spontaneous
  Country: CA (occurrence: CA)
  Receive Date: 20200424
  Receipt Date: 20200424
  Transmission Date: 20200714
  Serious: Yes (Life-Threatening, Hospitalization)
  Sender: FDA-Public Use
  Company Number: NVSC2020CA108488

PATIENT
  Age: 44 Year
  Sex: Male

DRUGS (1)
  1. SANDOZ METFORMIN FC [Suspect]
     Active Substance: METFORMIN HYDROCHLORIDE
     Indication: DIABETES MELLITUS
     Dosage: 500 MG, BID
     Route: 048

REACTIONS (4)
  - Swollen tongue [Unknown]
  - Pharyngeal swelling [Unknown]
  - Pain [Unknown]
  - Feeling abnormal [Unknown]
